FAERS Safety Report 25445490 (Version 1)
Quarter: 2025Q2

REPORT INFORMATION
  Report Type: Report from Study
  Country: US (occurrence: US)
  Receive Date: 20250617
  Receipt Date: 20250617
  Transmission Date: 20250716
  Serious: Yes (Other)
  Sender: MYLAN
  Company Number: US-MYLANLABS-2025M1050487

PATIENT

DRUGS (16)
  1. AMNESTEEM [Suspect]
     Active Substance: ISOTRETINOIN
     Indication: Product used for unknown indication
  2. AMNESTEEM [Suspect]
     Active Substance: ISOTRETINOIN
     Route: 065
  3. AMNESTEEM [Suspect]
     Active Substance: ISOTRETINOIN
     Route: 065
  4. AMNESTEEM [Suspect]
     Active Substance: ISOTRETINOIN
  5. AMNESTEEM [Suspect]
     Active Substance: ISOTRETINOIN
     Indication: Product used for unknown indication
  6. AMNESTEEM [Suspect]
     Active Substance: ISOTRETINOIN
     Route: 065
  7. AMNESTEEM [Suspect]
     Active Substance: ISOTRETINOIN
     Route: 065
  8. AMNESTEEM [Suspect]
     Active Substance: ISOTRETINOIN
  9. AMNESTEEM [Suspect]
     Active Substance: ISOTRETINOIN
     Indication: Product used for unknown indication
  10. AMNESTEEM [Suspect]
     Active Substance: ISOTRETINOIN
     Route: 065
  11. AMNESTEEM [Suspect]
     Active Substance: ISOTRETINOIN
     Route: 065
  12. AMNESTEEM [Suspect]
     Active Substance: ISOTRETINOIN
  13. CLARAVIS [Concomitant]
     Active Substance: ISOTRETINOIN
  14. CLARAVIS [Concomitant]
     Active Substance: ISOTRETINOIN
     Route: 065
  15. CLARAVIS [Concomitant]
     Active Substance: ISOTRETINOIN
     Route: 065
  16. CLARAVIS [Concomitant]
     Active Substance: ISOTRETINOIN

REACTIONS (1)
  - Breast cancer [Unknown]
